FAERS Safety Report 21938384 (Version 1)
Quarter: 2023Q1

REPORT INFORMATION
  Report Type: Report from Study
  Country: US (occurrence: None)
  Receive Date: 20230201
  Receipt Date: 20230201
  Transmission Date: 20230418
  Serious: Yes (Hospitalization)
  Sender: FDA-Public Use
  Company Number: US-Eisai Medical Research-EC-2023-132600

PATIENT
  Age: 68 Year
  Sex: Male
  Weight: 85.4 kg

DRUGS (2)
  1. LENVATINIB [Suspect]
     Active Substance: LENVATINIB
     Indication: Neuroendocrine tumour
     Route: 048
     Dates: start: 20220813, end: 20230103
  2. EVEROLIMUS [Suspect]
     Active Substance: EVEROLIMUS
     Indication: Neuroendocrine tumour
     Route: 048
     Dates: start: 20220813, end: 20230103

REACTIONS (4)
  - Urinary retention [Recovering/Resolving]
  - Confusional state [Recovered/Resolved]
  - Lethargy [Recovering/Resolving]
  - Hyponatraemia [Not Recovered/Not Resolved]

NARRATIVE: CASE EVENT DATE: 20230114
